FAERS Safety Report 11468900 (Version 1)
Quarter: 2015Q3

REPORT INFORMATION
  Report Type: Spontaneous
  Country: CH (occurrence: CH)
  Receive Date: 20150908
  Receipt Date: 20150908
  Transmission Date: 20151125
  Serious: Yes (Other)
  Sender: FDA-Public Use
  Company Number: CH-JNJFOC-20150814242

PATIENT
  Age: 68 Year
  Sex: Male

DRUGS (10)
  1. IBUPROFEN. [Concomitant]
     Active Substance: IBUPROFEN
     Route: 065
  2. AMLO ECO [Concomitant]
     Route: 065
  3. ASPIRIN CARDIO [Concomitant]
     Active Substance: ASPIRIN
     Route: 065
  4. DIAMICRON MR [Concomitant]
     Active Substance: GLICLAZIDE
     Route: 065
  5. LIPITOR [Concomitant]
     Active Substance: ATORVASTATIN CALCIUM
     Route: 065
  6. INVOKANA [Suspect]
     Active Substance: CANAGLIFLOZIN
     Indication: TYPE 2 DIABETES MELLITUS
     Route: 065
     Dates: start: 201411, end: 201502
  7. COVERSUM COMBI [Concomitant]
     Active Substance: INDAPAMIDE
     Route: 065
  8. INVOKANA [Suspect]
     Active Substance: CANAGLIFLOZIN
     Indication: TYPE 2 DIABETES MELLITUS
     Route: 065
     Dates: start: 201502
  9. METFIN [Concomitant]
     Active Substance: METFORMIN HYDROCHLORIDE
     Route: 065
  10. BYDUREON [Concomitant]
     Active Substance: EXENATIDE
     Route: 065

REACTIONS (2)
  - Phimosis [Unknown]
  - Balanoposthitis [Not Recovered/Not Resolved]

NARRATIVE: CASE EVENT DATE: 201504
